FAERS Safety Report 12789989 (Version 1)
Quarter: 2016Q3

REPORT INFORMATION
  Report Type: Spontaneous
  Country: US (occurrence: US)
  Receive Date: 20160928
  Receipt Date: 20160928
  Transmission Date: 20161109
  Serious: Yes (Other)
  Sender: FDA-Public Use
  Company Number: US-BIOGEN-2016BI00296572

PATIENT
  Sex: Female

DRUGS (2)
  1. TYSABRI [Suspect]
     Active Substance: NATALIZUMAB
     Indication: MULTIPLE SCLEROSIS
     Route: 065
     Dates: start: 20110420, end: 20141201
  2. TYSABRI [Suspect]
     Active Substance: NATALIZUMAB
     Route: 065
     Dates: start: 20151020

REACTIONS (9)
  - Fatigue [Unknown]
  - Feeling abnormal [Unknown]
  - Flushing [Unknown]
  - Blood pressure increased [Unknown]
  - Somnolence [Recovered/Resolved]
  - Mobility decreased [Recovered/Resolved]
  - Nausea [Unknown]
  - Headache [Unknown]
  - Tremor [Unknown]
